FAERS Safety Report 5776943-3 (Version None)
Quarter: 2008Q2

REPORT INFORMATION
  Report Type: 
  Country: None (occurrence: None)
  Receive Date: 20080617
  Receipt Date: 20080617
  Transmission Date: 20081010
  Serious: No
  Sender: FDA-Public Use
  Company Number: None

PATIENT
  Age: 38 Year
  Sex: Male

DRUGS (3)
  1. FACTIVE [Suspect]
     Indication: BRONCHITIS
     Dosage: 320 MG PO QD PTA
     Route: 048
  2. M.V.I. [Concomitant]
  3. DIPHENHYDRAMINE HCL [Concomitant]

REACTIONS (2)
  - ERYTHEMA [None]
  - RASH [None]
